FAERS Safety Report 4715681-2 (Version None)
Quarter: 2005Q3

REPORT INFORMATION
  Report Type: 
  Country: None (occurrence: None)
  Receive Date: 20050712
  Receipt Date: 20050629
  Transmission Date: 20060218
  Serious: Yes (Other)
  Sender: FDA-Public Use
  Company Number: 2005096463

PATIENT
  Age: 55 Year
  Sex: Male
  Weight: 80 kg

DRUGS (3)
  1. SOLU-MEDROL [Suspect]
     Indication: ILL-DEFINED DISORDER
     Dosage: 1 GRAM (1 D), INTRAVENOUS
     Route: 042
     Dates: start: 20030101, end: 20030101
  2. PREDNISOLONE [Suspect]
     Indication: ILL-DEFINED DISORDER
     Dates: start: 20030101, end: 20030510
  3. CYCLOSPORINE [Suspect]
     Indication: ILL-DEFINED DISORDER
     Dates: start: 20030201

REACTIONS (13)
  - ANAEMIA [None]
  - ASCITES [None]
  - CHOROIDAL NEOVASCULARISATION [None]
  - CREPITATIONS [None]
  - GLOMERULONEPHRITIS MEMBRANOPROLIFERATIVE [None]
  - LENS DISORDER [None]
  - MACULAR OEDEMA [None]
  - OEDEMA [None]
  - OEDEMA PERIPHERAL [None]
  - RENAL IMPAIRMENT [None]
  - RETINAL HAEMORRHAGE [None]
  - RETINAL PIGMENT EPITHELIOPATHY [None]
  - VITREOUS HAEMORRHAGE [None]
